FAERS Safety Report 16884693 (Version 1)
Quarter: 2019Q4

REPORT INFORMATION
  Report Type: Spontaneous
  Country: CA (occurrence: CA)
  Receive Date: 20191004
  Receipt Date: 20191004
  Transmission Date: 20200122
  Serious: Yes (Other)
  Sender: FDA-Public Use
  Company Number: CA-TEVA-2019-CA-1115661

PATIENT
  Age: 44 Year
  Sex: Female

DRUGS (18)
  1. LANSOPRAZOLE. [Suspect]
     Active Substance: LANSOPRAZOLE
  2. ARTHROTEC [Concomitant]
     Active Substance: DICLOFENAC SODIUM\MISOPROSTOL
  3. HYDROCHLOROTHIAZIDE. [Concomitant]
     Active Substance: HYDROCHLOROTHIAZIDE
  4. NAPROXEN. [Concomitant]
     Active Substance: NAPROXEN
  5. MELOXICAM. [Concomitant]
     Active Substance: MELOXICAM
  6. DICLOFENAC [Suspect]
     Active Substance: DICLOFENAC
     Route: 065
  7. ADALIMUMAB [Concomitant]
     Active Substance: ADALIMUMAB
  8. COSENTYX [Suspect]
     Active Substance: SECUKINUMAB
     Route: 058
  9. HYDROCORTISONE. [Suspect]
     Active Substance: HYDROCORTISONE
     Route: 065
  10. PERINDOPRIL [Concomitant]
     Active Substance: PERINDOPRIL
  11. PREDNISONE. [Concomitant]
     Active Substance: PREDNISONE
  12. RALIVIA [Concomitant]
     Active Substance: TRAMADOL HYDROCHLORIDE
  13. AMLODIPINE BESILATE [Suspect]
     Active Substance: AMLODIPINE BESYLATE
  14. CYANOCOBALAMIN. [Suspect]
     Active Substance: CYANOCOBALAMIN
     Route: 065
  15. OXYCODONE [Suspect]
     Active Substance: OXYCODONE
  16. CELEBREX [Concomitant]
     Active Substance: CELECOXIB
  17. IBUPROFEN. [Concomitant]
     Active Substance: IBUPROFEN
  18. MOBICOX [Concomitant]
     Active Substance: MELOXICAM

REACTIONS (9)
  - Musculoskeletal stiffness [Recovering/Resolving]
  - Joint swelling [Recovering/Resolving]
  - Back pain [Recovering/Resolving]
  - Swelling [Recovering/Resolving]
  - Nasopharyngitis [Recovering/Resolving]
  - Neck pain [Recovering/Resolving]
  - Musculoskeletal pain [Recovering/Resolving]
  - Arthralgia [Recovering/Resolving]
  - Humerus fracture [Recovering/Resolving]
